FAERS Safety Report 18902628 (Version 2)
Quarter: 2021Q1

REPORT INFORMATION
  Report Type: Report from Study
  Country: US (occurrence: US)
  Receive Date: 20210216
  Receipt Date: 20210225
  Transmission Date: 20210420
  Serious: Yes (Hospitalization, Other)
  Sender: FDA-Public Use
  Company Number: US-ASTRAZENECA-2021A009368

PATIENT
  Age: 16172 Day
  Sex: Male
  Weight: 74.4 kg

DRUGS (6)
  1. TAGRISSO [Suspect]
     Active Substance: OSIMERTINIB
     Indication: LUNG CARCINOMA CELL TYPE UNSPECIFIED STAGE 0
     Route: 048
     Dates: start: 20210106, end: 202101
  2. TAGRISSO [Suspect]
     Active Substance: OSIMERTINIB
     Indication: LUNG CARCINOMA CELL TYPE UNSPECIFIED STAGE 0
     Route: 048
  3. IBUPROFEN. [Concomitant]
     Active Substance: IBUPROFEN
  4. TAGRISSO [Suspect]
     Active Substance: OSIMERTINIB
     Indication: LUNG CARCINOMA CELL TYPE UNSPECIFIED STAGE 0
     Route: 048
     Dates: start: 20210124
  5. CYCLOBENZAPRINE. [Concomitant]
     Active Substance: CYCLOBENZAPRINE
  6. ACETAMINOPHEN. [Concomitant]
     Active Substance: ACETAMINOPHEN

REACTIONS (23)
  - Pleural effusion [Unknown]
  - Nausea [Not Recovered/Not Resolved]
  - Decreased appetite [Recovering/Resolving]
  - Pruritus [Recovering/Resolving]
  - Chills [Recovered/Resolved]
  - Diarrhoea [Recovering/Resolving]
  - Hyperaesthesia [Unknown]
  - Fall [Unknown]
  - Decreased appetite [Unknown]
  - Rash [Not Recovered/Not Resolved]
  - Photophobia [Unknown]
  - Constipation [Not Recovered/Not Resolved]
  - Viral infection [Unknown]
  - Malnutrition [Unknown]
  - Myalgia [Unknown]
  - Pain of skin [Unknown]
  - Weight decreased [Recovered/Resolved]
  - Illness [Unknown]
  - Balance disorder [Unknown]
  - Headache [Recovering/Resolving]
  - Pyrexia [Recovered/Resolved]
  - Vomiting [Recovered/Resolved]
  - SARS-CoV-2 test negative [Unknown]

NARRATIVE: CASE EVENT DATE: 20210108
